FAERS Safety Report 6529593-5 (Version None)
Quarter: 2010Q1

REPORT INFORMATION
  Report Type: 
  Country: None (occurrence: None)
  Receive Date: 20100107
  Receipt Date: 20100105
  Transmission Date: 20100710
  Serious: Yes (Life-Threatening, Hospitalization, Other)
  Sender: FDA-Public Use
  Company Number: FR-JNJFOC-20100101312

PATIENT
  Age: 54 Year
  Sex: Male

DRUGS (10)
  1. TAVANIC [Suspect]
     Indication: LUNG DISORDER
     Route: 048
  2. CEFTRIAXONE [Suspect]
     Indication: LUNG DISORDER
     Route: 065
  3. RAPAMUNE [Concomitant]
     Route: 065
  4. SOLUPRED [Concomitant]
     Route: 065
  5. FLUTICASONE PROPIONATE/SALMETEROL [Concomitant]
     Route: 065
  6. APROVEL [Concomitant]
     Route: 065
  7. ONE-ALPHA [Concomitant]
     Route: 065
  8. SIMVASTATIN [Concomitant]
     Route: 065
  9. ALLOPURINOL [Concomitant]
     Route: 065
  10. ARANESP [Concomitant]
     Route: 065

REACTIONS (1)
  - RASH MORBILLIFORM [None]
